FAERS Safety Report 13572007 (Version 2)
Quarter: 2017Q3

REPORT INFORMATION
  Report Type: Report from Study
  Country: BR (occurrence: BR)
  Receive Date: 20170523
  Receipt Date: 20170828
  Transmission Date: 20171127
  Serious: Yes (Hospitalization)
  Sender: FDA-Public Use
  Company Number: PHHY2017BR075032

PATIENT
  Sex: Female
  Weight: 87 kg

DRUGS (3)
  1. UC II [Concomitant]
     Indication: OSTEOPOROSIS
     Route: 065
  2. ACLASTA [Suspect]
     Active Substance: ZOLEDRONIC ACID
     Indication: OSTEOPOROSIS
     Dosage: 1 DF (5MG/100ML), Q12MO
     Route: 042
  3. VITAMIN D3 [Concomitant]
     Active Substance: CHOLECALCIFEROL
     Indication: PRODUCT USED FOR UNKNOWN INDICATION
     Dosage: 5000 IU, UNK, (THREE TIMES A WEEK)
     Route: 065

REACTIONS (2)
  - Infection [Unknown]
  - Nephrolithiasis [Unknown]
